FAERS Safety Report 6352782-X (Version None)
Quarter: 2009Q3

REPORT INFORMATION
  Report Type: 
  Country: None (occurrence: None)
  Receive Date: 20090912
  Receipt Date: 20090622
  Transmission Date: 20100115
  Serious: No
  Sender: FDA-Public Use
  Company Number: US-ABBOTT-08P-163-0446374-00

PATIENT
  Sex: Female
  Weight: 44.946 kg

DRUGS (5)
  1. HUMIRA [Suspect]
     Indication: ECZEMA
     Route: 058
     Dates: start: 20080327, end: 20080408
  2. HUMIRA [Suspect]
     Indication: DERMATITIS
  3. HUMIRA [Suspect]
     Indication: ARTHRITIS
  4. CETIRIZINE HYDROCHLORIDE [Concomitant]
     Indication: DRUG USE FOR UNKNOWN INDICATION
     Route: 048
  5. INTERNAL BREATH FRESHNER [Concomitant]
     Indication: DRUG USE FOR UNKNOWN INDICATION

REACTIONS (5)
  - INCORRECT DOSE ADMINISTERED [None]
  - INJECTION SITE ERYTHEMA [None]
  - INJECTION SITE HAEMATOMA [None]
  - INJECTION SITE INFLAMMATION [None]
  - PRURITUS [None]
